FAERS Safety Report 7673201-7 (Version None)
Quarter: 2011Q3

REPORT INFORMATION
  Report Type: 
  Country: None (occurrence: None)
  Receive Date: 20110810
  Receipt Date: 20110805
  Transmission Date: 20111222
  Serious: No
  Sender: FDA-Public Use
  Company Number: US-BIOGENIDEC-2011BI029726

PATIENT
  Age: 66 Year
  Sex: Female

DRUGS (2)
  1. TYSABRI [Suspect]
     Indication: MULTIPLE SCLEROSIS
     Route: 042
     Dates: start: 20110727
  2. TYSABRI [Suspect]
     Route: 042
     Dates: start: 20080707, end: 20080707

REACTIONS (3)
  - OEDEMA PERIPHERAL [None]
  - FATIGUE [None]
  - ARTHRALGIA [None]
